FAERS Safety Report 9748939 (Version 4)
Quarter: 2014Q1

REPORT INFORMATION
  Report Type: Spontaneous
  Country: JP (occurrence: None)
  Receive Date: 20131209
  Receipt Date: 20140311
  Transmission Date: 20141002
  Serious: Yes (Hospitalization)
  Sender: FDA-Public Use
  Company Number: JP-013907

PATIENT
  Age: 90 Year
  Sex: Male
  Weight: 49.7 kg

DRUGS (6)
  1. DEGARELIX [Suspect]
     Indication: PROSTATE CANCER METASTATIC
     Route: 058
     Dates: start: 20131112, end: 20131112
  2. SOLU-MEDROL [Concomitant]
  3. LOXONIN [Concomitant]
  4. MILMAG [Concomitant]
  5. NORVASC [Concomitant]
  6. CASODEX [Concomitant]

REACTIONS (7)
  - Angina unstable [None]
  - Tachycardia [None]
  - Respiratory disorder [None]
  - Electrocardiogram ST segment depression [None]
  - Coronary artery occlusion [None]
  - Coronary artery stenosis [None]
  - Tachypnoea [None]
